FAERS Safety Report 18241818 (Version 1)
Quarter: 2020Q3

REPORT INFORMATION
  Report Type: Spontaneous
  Country: US (occurrence: US)
  Receive Date: 20200905
  Receipt Date: 20200905
  Transmission Date: 20201103
  Serious: No
  Sender: FDA-Public Use
  Company Number: None

PATIENT
  Sex: Male

DRUGS (1)
  1. AVONEX PEN [Suspect]
     Active Substance: INTERFERON BETA-1A
     Indication: MULTIPLE SCLEROSIS
     Dosage: ?          OTHER STRENGTH:30/0.5 UG/M;?
     Route: 030
     Dates: start: 201910

REACTIONS (16)
  - Swelling face [None]
  - Eye swelling [None]
  - Dyspnoea [None]
  - Syncope [None]
  - Dermatitis allergic [None]
  - Anxiety [None]
  - Swollen tongue [None]
  - Rash [None]
  - Lip swelling [None]
  - Urticaria [None]
  - Pruritus [None]
  - Stomatitis [None]
  - Skin exfoliation [None]
  - Blister [None]
  - Acne [None]
  - Pharyngeal swelling [None]
